FAERS Safety Report 4892315-8 (Version None)
Quarter: 2006Q1

REPORT INFORMATION
  Report Type: 
  Country: None (occurrence: None)
  Receive Date: 20060126
  Receipt Date: 20050412
  Transmission Date: 20060701
  Serious: Yes (Hospitalization)
  Sender: FDA-Public Use
  Company Number: US-MERCK-0504USA02222

PATIENT
  Age: 59 Year
  Sex: Male
  Weight: 75 kg

DRUGS (4)
  1. VIOXX [Suspect]
     Indication: ARTHRITIS
     Route: 048
     Dates: start: 20000327, end: 20030131
  2. VIOXX [Suspect]
     Route: 048
     Dates: start: 20030131, end: 20040901
  3. VIOXX [Suspect]
     Indication: COSTOCHONDRITIS
     Route: 048
     Dates: start: 20000327, end: 20030131
  4. VIOXX [Suspect]
     Route: 048
     Dates: start: 20030131, end: 20040901

REACTIONS (12)
  - ACARODERMATITIS [None]
  - BLOOD PRESSURE INCREASED [None]
  - HEADACHE [None]
  - HERNIA [None]
  - INGUINAL HERNIA REPAIR [None]
  - MUSCLE SPASMS [None]
  - NEUROPATHY PERIPHERAL [None]
  - PANIC DISORDER [None]
  - RASH [None]
  - TENDONITIS [None]
  - TRANSIENT ISCHAEMIC ATTACK [None]
  - VERTIGO [None]
